FAERS Safety Report 13153360 (Version 1)
Quarter: 2017Q1

REPORT INFORMATION
  Report Type: Spontaneous
  Country: US (occurrence: US)
  Receive Date: 20170126
  Receipt Date: 20170126
  Transmission Date: 20170428
  Serious: Yes (Hospitalization)
  Sender: FDA-Public Use
  Company Number: US-VALIDUS PHARMACEUTICALS LLC-US-2015VAL000512

PATIENT
  Sex: Male

DRUGS (2)
  1. EQUETRO [Suspect]
     Active Substance: CARBAMAZEPINE
     Indication: PRODUCT USED FOR UNKNOWN INDICATION
     Dosage: 200 MG, BID
  2. EQUETRO [Suspect]
     Active Substance: CARBAMAZEPINE
     Dosage: 400 DF, BID

REACTIONS (1)
  - Rash generalised [Unknown]
